FAERS Safety Report 6533300-X (Version None)
Quarter: 2010Q1

REPORT INFORMATION
  Report Type: 
  Country: None (occurrence: None)
  Receive Date: 20100111
  Receipt Date: 20100106
  Transmission Date: 20100710
  Serious: Yes (Hospitalization, Disabling, Other)
  Sender: FDA-Public Use
  Company Number: PR-MERCK-0805USA02793

PATIENT
  Age: 60 Year
  Sex: Female

DRUGS (2)
  1. FOSAMAX [Suspect]
     Indication: OSTEOPOROSIS
     Route: 048
     Dates: start: 19990101
  2. FOSAMAX [Suspect]
     Route: 048
     Dates: start: 19990101, end: 20040101

REACTIONS (38)
  - ABDOMINAL DISCOMFORT [None]
  - ALVEOLITIS [None]
  - ANXIETY [None]
  - ARTHROPATHY [None]
  - BARBITURATES POSITIVE [None]
  - BIPOLAR DISORDER [None]
  - BONE DENSITY DECREASED [None]
  - BONE DISORDER [None]
  - BRUXISM [None]
  - CLAVICLE FRACTURE [None]
  - DENTAL CARIES [None]
  - DEPRESSION [None]
  - DRUG DEPENDENCE [None]
  - DYSLIPIDAEMIA [None]
  - FACIAL BONES FRACTURE [None]
  - GASTROINTESTINAL DISORDER [None]
  - GASTROOESOPHAGEAL REFLUX DISEASE [None]
  - GINGIVAL DISORDER [None]
  - GINGIVAL RECESSION [None]
  - HAEMATOMA [None]
  - HIATUS HERNIA [None]
  - HYPERTENSION [None]
  - IMPAIRED HEALING [None]
  - INAPPROPRIATE SCHEDULE OF DRUG ADMINISTRATION [None]
  - INFECTION [None]
  - INTERVERTEBRAL DISC DISORDER [None]
  - LOOSE TOOTH [None]
  - OSTEONECROSIS [None]
  - PAIN [None]
  - PERIODONTITIS [None]
  - PERSONALITY DISORDER [None]
  - PROTEINURIA [None]
  - SLEEP DISORDER [None]
  - SPINAL FRACTURE [None]
  - TOOTH FRACTURE [None]
  - TOOTHACHE [None]
  - UPPER RESPIRATORY TRACT INFECTION [None]
  - WEIGHT DECREASED [None]
